FAERS Safety Report 12285767 (Version 1)
Quarter: 2016Q2

REPORT INFORMATION
  Report Type: Spontaneous
  Country: US (occurrence: None)
  Receive Date: 20160419
  Receipt Date: 20160419
  Transmission Date: 20160815
  Serious: Yes (Other)
  Sender: FDA-Public Use
  Company Number: None

PATIENT
  Age: 77 Year
  Sex: Male
  Weight: 63.5 kg

DRUGS (1)
  1. OLOPADADINE HYDROCHLORIDE 0.1% E, 0.1% SANDOZ [Suspect]
     Active Substance: OLOPATADINE HYDROCHLORIDE
     Indication: HYPERSENSITIVITY
     Dosage: 1 ML BID OPHTHALMIC
     Dates: start: 20160401, end: 20160411

REACTIONS (2)
  - Self-medication [None]
  - Heart rate irregular [None]

NARRATIVE: CASE EVENT DATE: 20160411
